FAERS Safety Report 8791896 (Version 2)
Quarter: 2018Q4

REPORT INFORMATION
  Report Type: Spontaneous
  Country: FR (occurrence: FR)
  Receive Date: 20120918
  Receipt Date: 20181108
  Transmission Date: 20190205
  Serious: Yes (Hospitalization, Other)
  Sender: FDA-Public Use
  Company Number: FR-SANOFI-AVENTIS-2012SA065403

PATIENT
  Age: 65 Year
  Sex: Female

DRUGS (9)
  1. ACUPAN [Concomitant]
     Active Substance: NEFOPAM HYDROCHLORIDE
     Dosage: UNK UNK,PRN
     Route: 065
  2. LINEZOLID. [Suspect]
     Active Substance: LINEZOLID
     Indication: ARTHRITIS
     Dosage: 600 MG,BID
     Route: 042
     Dates: start: 20120505, end: 20120507
  3. AMLODIPINE [Concomitant]
     Active Substance: AMLODIPINE BESYLATE
     Dosage: 10 MG,1X
     Route: 065
  4. ROSUVASTATIN CALCIUM. [Concomitant]
     Active Substance: ROSUVASTATIN CALCIUM
     Dosage: 5 MG,1X
     Route: 065
  5. PARACETAMOL [Concomitant]
     Active Substance: ACETAMINOPHEN
     Dosage: UNK UNK,PRN
     Route: 065
  6. HYDROCHLOROTHIAZIDE. [Concomitant]
     Active Substance: HYDROCHLOROTHIAZIDE
     Dosage: UNK UNK,1X
     Route: 065
  7. RIFADINE [Suspect]
     Active Substance: RIFAMPIN
     Indication: ARTHRITIS
     Dosage: 600 MG,TID
     Route: 048
     Dates: start: 20120505, end: 20120529
  8. LINEZOLID. [Suspect]
     Active Substance: LINEZOLID
     Dosage: 600 MG,BID
     Route: 048
     Dates: start: 20120508, end: 20120529
  9. ESOMEPRAZOLE MAGNESIUM. [Concomitant]
     Active Substance: ESOMEPRAZOLE MAGNESIUM
     Dosage: 20 MG,1X
     Route: 065

REACTIONS (4)
  - Asthenia [Recovering/Resolving]
  - Lactic acidosis [Recovered/Resolved]
  - Hepatocellular injury [Recovered/Resolved]
  - Gastrointestinal disorder [Recovered/Resolved]

NARRATIVE: CASE EVENT DATE: 20120515
